FAERS Safety Report 4698397-0 (Version None)
Quarter: 2005Q2

REPORT INFORMATION
  Report Type: 
  Country: None (occurrence: None)
  Receive Date: 20050621
  Receipt Date: 20050603
  Transmission Date: 20051028
  Serious: Yes (Hospitalization)
  Sender: FDA-Public Use
  Company Number: DSA_26582_2005

PATIENT
  Age: 84 Year
  Sex: Female

DRUGS (6)
  1. TEMESTA [Suspect]
     Dosage: DF PO
     Route: 048
     Dates: end: 20050507
  2. PREVISCAN [Suspect]
     Dosage: DF PO
     Route: 048
     Dates: end: 20050506
  3. ATARAX [Concomitant]
  4. CORDARONE [Concomitant]
  5. LODALES [Concomitant]
  6. LESCOL [Concomitant]

REACTIONS (5)
  - FALL [None]
  - INTERNATIONAL NORMALISED RATIO INCREASED [None]
  - LOSS OF CONSCIOUSNESS [None]
  - OVERDOSE [None]
  - SUBDURAL HAEMATOMA [None]
